FAERS Safety Report 11211377 (Version 1)
Quarter: 2015Q2

REPORT INFORMATION
  Report Type: Spontaneous
  Country: CA (occurrence: None)
  Receive Date: 20150619
  Receipt Date: 20150619
  Transmission Date: 20150821
  Serious: Yes (Other)
  Sender: FDA-Public Use
  Company Number: None

PATIENT
  Age: 38 Year
  Sex: Female
  Weight: 92.99 kg

DRUGS (8)
  1. ZOPLICONE [Concomitant]
     Active Substance: ZOPICLONE
  2. WELLBUTRIN [Concomitant]
     Active Substance: BUPROPION HYDROCHLORIDE
  3. PERCOCET [Concomitant]
     Active Substance: ACETAMINOPHEN\OXYCODONE HYDROCHLORIDE
  4. ATIVAN [Concomitant]
     Active Substance: LORAZEPAM
  5. THRIVE LE VEL DIETARY SUPPLEMENT [Suspect]
     Active Substance: DIETARY SUPPLEMENT
     Indication: WEIGHT DECREASED
     Dates: start: 20150617, end: 20150617
  6. FENTANYL. [Suspect]
     Active Substance: FENTANYL
  7. TORADOL [Concomitant]
     Active Substance: KETOROLAC TROMETHAMINE
  8. THRIVE LE VEL DIETARY SUPPLEMENT [Suspect]
     Active Substance: DIETARY SUPPLEMENT
     Indication: ILL-DEFINED DISORDER
     Dates: start: 20150617, end: 20150617

REACTIONS (3)
  - Drug interaction [None]
  - Product label issue [None]
  - Dermal absorption increased [None]

NARRATIVE: CASE EVENT DATE: 20150617
